FAERS Safety Report 7790966-4 (Version None)
Quarter: 2011Q4

REPORT INFORMATION
  Report Type: 
  Country: None (occurrence: None)
  Receive Date: 20111002
  Receipt Date: 20110928
  Transmission Date: 20120403
  Serious: Yes (Death, Hospitalization, Other)
  Sender: FDA-Public Use
  Company Number: PHEH2006US08085

PATIENT
  Sex: Female
  Weight: 61 kg

DRUGS (20)
  1. FUROSEMIDE [Concomitant]
     Dosage: 20 MG,
  2. MECLIZINE [Concomitant]
     Dosage: 25 MG,
  3. ZOLOFT [Concomitant]
     Dosage: 25MG, ONCE DAILY
  4. IBUPROFEN (ADVIL) [Concomitant]
     Indication: PAIN
  5. WARFARIN SODIUM [Concomitant]
     Indication: ANTICOAGULANT THERAPY
     Dosage: 5 MG, QD
  6. ZOMETA [Suspect]
     Indication: BREAST CANCER METASTATIC
     Dosage: 4 MG, QMO
  7. DILTIAZEM HCL [Concomitant]
     Indication: BLOOD PRESSURE
     Dosage: 360 MG, QD
  8. TAMOXIFEN CITRATE [Concomitant]
  9. OXYCODONE HCL [Concomitant]
     Dosage: 5 MG,
  10. VITAMIN B-12 [Concomitant]
     Dosage: 100 MG, QD
  11. SINGULAIR [Concomitant]
     Indication: ASTHMA
     Dosage: 10 MG, QD
  12. ZOLOFT [Concomitant]
     Dosage: 50 MG,
  13. AREDIA [Suspect]
     Indication: BREAST CANCER METASTATIC
  14. FEMARA [Concomitant]
     Dosage: 2.5 MG,
  15. KLOR-CON [Concomitant]
     Dosage: 10 MEQ,
  16. TEMAZEPAM [Concomitant]
  17. MIRALAX [Concomitant]
     Indication: CONSTIPATION
  18. ADVAIR DISKUS 100/50 [Concomitant]
     Indication: ASTHMA
  19. FASLODEX [Concomitant]
     Dosage: 250 MG,
  20. VITAMIN B-12 [Concomitant]
     Dosage: 100 MG, QD

REACTIONS (85)
  - ANAEMIA [None]
  - SPINAL OSTEOARTHRITIS [None]
  - FATIGUE [None]
  - RETROPERITONEAL CANCER [None]
  - HEPATIC NEOPLASM MALIGNANT [None]
  - ADRENAL DISORDER [None]
  - LEUKOCYTOSIS [None]
  - HEPATIC LESION [None]
  - OSTEONECROSIS OF JAW [None]
  - PAIN [None]
  - TRICUSPID VALVE INCOMPETENCE [None]
  - NECK PAIN [None]
  - DYSPNOEA [None]
  - VARICOSE VEIN [None]
  - PANCREATITIS ACUTE [None]
  - ROTATOR CUFF SYNDROME [None]
  - SEBORRHOEA [None]
  - GAIT DISTURBANCE [None]
  - DEATH [None]
  - ANXIETY [None]
  - EATING DISORDER [None]
  - ERYTHEMA [None]
  - RETINAL VEIN OCCLUSION [None]
  - ATRIAL FLUTTER [None]
  - OSTEOARTHRITIS [None]
  - INTERVERTEBRAL DISC DEGENERATION [None]
  - ASTHENIA [None]
  - TREMOR [None]
  - CHOLELITHIASIS [None]
  - BONE PAIN [None]
  - ORAL PAIN [None]
  - CHEST PAIN [None]
  - MITRAL VALVE INCOMPETENCE [None]
  - DILATATION ATRIAL [None]
  - CARDIOMEGALY [None]
  - RIB FRACTURE [None]
  - SKIN CANCER [None]
  - ASCITES [None]
  - DIVERTICULUM INTESTINAL [None]
  - VASCULAR CALCIFICATION [None]
  - SIALOADENITIS [None]
  - DENTAL CARIES [None]
  - DEHYDRATION [None]
  - CARDIAC FAILURE CONGESTIVE [None]
  - BONE DISORDER [None]
  - VISUAL ACUITY REDUCED [None]
  - PULMONARY HYPERTENSION [None]
  - RADICULOPATHY [None]
  - DECREASED APPETITE [None]
  - ABSCESS [None]
  - SWELLING [None]
  - MUSCULOSKELETAL PAIN [None]
  - SYNCOPE [None]
  - RHINITIS [None]
  - GENERAL PHYSICAL HEALTH DETERIORATION [None]
  - DECREASED INTEREST [None]
  - EXOSTOSIS [None]
  - PAIN IN JAW [None]
  - HYPOAESTHESIA ORAL [None]
  - AORTIC CALCIFICATION [None]
  - AORTIC ARTERIOSCLEROSIS [None]
  - FALL [None]
  - JOINT RANGE OF MOTION DECREASED [None]
  - CONSTIPATION [None]
  - WEIGHT DECREASED [None]
  - MALIGNANT PERITONEAL NEOPLASM [None]
  - ECZEMA [None]
  - GASTROENTERITIS [None]
  - VOMITING [None]
  - HYPERKALAEMIA [None]
  - TACHYCARDIA [None]
  - ARRHYTHMIA [None]
  - RETINAL HAEMORRHAGE [None]
  - OEDEMA PERIPHERAL [None]
  - DIZZINESS [None]
  - PLEURAL EFFUSION [None]
  - ABDOMINAL PAIN [None]
  - SEBORRHOEIC KERATOSIS [None]
  - RENAL FAILURE ACUTE [None]
  - METASTASES TO BONE [None]
  - GLOSSITIS [None]
  - INTESTINAL OBSTRUCTION [None]
  - ATELECTASIS [None]
  - RENAL CYST [None]
  - URINARY TRACT INFECTION [None]
